FAERS Safety Report 10494830 (Version 1)
Quarter: 2014Q3

REPORT INFORMATION
  Report Type: Spontaneous
  Country: US (occurrence: None)
  Receive Date: 20140815
  Receipt Date: 20140815
  Transmission Date: 20150326
  Serious: Yes (Hospitalization, Other)
  Sender: FDA-Public Use
  Company Number: ADR-2014-00201

PATIENT
  Age: 48 Year
  Sex: Female

DRUGS (3)
  1. DILAUDID [Suspect]
     Active Substance: HYDROMORPHONE HYDROCHLORIDE
  2. BACLOFEN. [Suspect]
     Active Substance: BACLOFEN
     Indication: PAIN
  3. BUPIVACAINE [Suspect]
     Active Substance: BUPIVACAINE

REACTIONS (3)
  - Drug withdrawal syndrome [None]
  - Underdose [None]
  - Influenza like illness [None]
